FAERS Safety Report 8720689 (Version 2)
Quarter: 2015Q2

REPORT INFORMATION
  Report Type: Report from Study
  Country: US (occurrence: US)
  Receive Date: 20120813
  Receipt Date: 20150626
  Transmission Date: 20150821
  Serious: Yes (Death, Hospitalization)
  Sender: FDA-Public Use
  Company Number: US-ROCHE-1099894

PATIENT
  Sex: Male

DRUGS (8)
  1. MORPHINE [Concomitant]
     Active Substance: MORPHINE
     Route: 042
  2. MORPHINE [Concomitant]
     Active Substance: MORPHINE
     Route: 065
  3. NITROGLYCERIN. [Concomitant]
     Active Substance: NITROGLYCERIN
  4. ACTIVASE [Suspect]
     Active Substance: ALTEPLASE
     Route: 042
  5. ACTIVASE [Suspect]
     Active Substance: ALTEPLASE
     Route: 042
  6. BREVIBLOC [Concomitant]
     Active Substance: ESMOLOL HYDROCHLORIDE
  7. ACTIVASE [Suspect]
     Active Substance: ALTEPLASE
     Indication: ACUTE MYOCARDIAL INFARCTION
     Route: 042
  8. MORPHINE [Concomitant]
     Active Substance: MORPHINE
     Route: 042

REACTIONS (4)
  - Coma [Fatal]
  - Cerebral haemorrhage [Fatal]
  - Respiratory arrest [Fatal]
  - Hypotension [Unknown]
